FAERS Safety Report 9720992 (Version 1)
Quarter: 2013Q4

REPORT INFORMATION
  Report Type: Spontaneous
  Country: BR (occurrence: BR)
  Receive Date: 20131129
  Receipt Date: 20131129
  Transmission Date: 20140711
  Serious: Yes (Other)
  Sender: FDA-Public Use
  Company Number: BR-ABBVIE-13P-020-1174421-00

PATIENT
  Age: 55 Year
  Sex: Male

DRUGS (5)
  1. SYNTHROID [Suspect]
     Indication: THYROIDECTOMY
     Route: 048
     Dates: start: 2010
  2. SYNTHROID [Suspect]
     Dosage: 1 TABLET IN THE MORNING (ON FASTING)
     Route: 048
     Dates: start: 2009
  3. ACETYLSALICYLIC ACID [Concomitant]
     Indication: CARDIOVASCULAR DISORDER
     Route: 048
  4. UNKNOWN HERBAL MEDICATION [Concomitant]
     Indication: PRODUCT USED FOR UNKNOWN INDICATION
  5. UNKNOWN HOMEOPATHIC MEDICATION [Concomitant]
     Indication: PRODUCT USED FOR UNKNOWN INDICATION

REACTIONS (12)
  - Neoplasm malignant [Unknown]
  - Sensory loss [Recovering/Resolving]
  - Neck pain [Recovering/Resolving]
  - Mass [Not Recovered/Not Resolved]
  - Depression [Not Recovered/Not Resolved]
  - Prostatomegaly [Unknown]
  - Urinary incontinence [Recovering/Resolving]
  - Asthenia [Not Recovered/Not Resolved]
  - Apathy [Not Recovered/Not Resolved]
  - Gait disturbance [Not Recovered/Not Resolved]
  - Depressed mood [Not Recovered/Not Resolved]
  - Lymphadenopathy [Not Recovered/Not Resolved]
